FAERS Safety Report 14711002 (Version 4)
Quarter: 2023Q2

REPORT INFORMATION
  Report Type: Spontaneous
  Country: IS (occurrence: IS)
  Receive Date: 20180403
  Receipt Date: 20230609
  Transmission Date: 20230722
  Serious: Yes (Life-Threatening, Hospitalization, Other)
  Sender: FDA-Public Use
  Company Number: IS-SOLVAY-00301000212

PATIENT
  Age: 38 Year
  Sex: Male

DRUGS (7)
  1. ATENOLOL [Interacting]
     Active Substance: ATENOLOL
     Indication: Product used for unknown indication
     Dosage: DAILY DOSE: UNK. FREQUENCY:UNKNOWN
     Route: 065
  2. ATENOLOL [Interacting]
     Active Substance: ATENOLOL
     Dosage: PEAK SERUM LEVEL 35 UG/ML
     Route: 065
  3. CARDIZEM [Interacting]
     Active Substance: DILTIAZEM HYDROCHLORIDE
     Indication: Product used for unknown indication
     Dosage: DAILY DOSE: UNK. FREQUENCY:UNKNOWN
     Route: 065
  4. CARDIZEM [Interacting]
     Active Substance: DILTIAZEM HYDROCHLORIDE
     Dosage: PEAK SERUM LEVEL 3.7 UG/ML
     Route: 065
  5. SORBANGIL [Concomitant]
     Indication: Product used for unknown indication
     Dosage: DAILY DOSE: UNK. FREQUENCY:UNKNOWN
     Route: 065
  6. NITROGLYCERIN [Concomitant]
     Active Substance: NITROGLYCERIN
     Indication: Product used for unknown indication
     Dosage: UNK
     Route: 065
  7. NITROGLYCERIN [Concomitant]
     Active Substance: NITROGLYCERIN
     Dosage: UNK
     Route: 065

REACTIONS (20)
  - Pneumonia [Recovering/Resolving]
  - Hypotension [Recovered/Resolved]
  - Bradycardia [Recovered/Resolved]
  - Myocardial infarction [Recovering/Resolving]
  - Cardiac arrest [Recovered/Resolved]
  - Oliguria [Recovered/Resolved]
  - Drug interaction [Recovered/Resolved]
  - Overdose [Unknown]
  - Intentional overdose [Recovered/Resolved]
  - Cardiomegaly [Recovered/Resolved]
  - Respiratory failure [Recovered/Resolved]
  - Anuria [Recovered/Resolved]
  - Pulmonary oedema [Recovered/Resolved]
  - Hyperglycaemia [Recovered/Resolved]
  - Suicide attempt [Unknown]
  - Haemorrhage [Unknown]
  - Depressed level of consciousness [Unknown]
  - Defect conduction intraventricular [Unknown]
  - Hypothermia [Unknown]
  - Drug abuse [Unknown]
